FAERS Safety Report 6685054-4 (Version None)
Quarter: 2010Q2

REPORT INFORMATION
  Report Type: 
  Country: None (occurrence: None)
  Receive Date: 20100416
  Receipt Date: 20100416
  Transmission Date: 20101027
  Serious: Yes (Other)
  Sender: FDA-Public Use
  Company Number: A0844023A

PATIENT
  Age: 45 Year
  Sex: Female
  Weight: 140 kg

DRUGS (8)
  1. ADVAIR DISKUS 100/50 [Suspect]
     Indication: ASTHMA
     Dosage: 1PUFF TWICE PER DAY
     Route: 055
  2. PREDNISONE [Concomitant]
  3. MICARDIS [Concomitant]
  4. COMBIVENT [Concomitant]
  5. DUONEB [Concomitant]
  6. ASTELIN [Concomitant]
  7. ZYRTEC [Concomitant]
  8. CLARITIN [Concomitant]

REACTIONS (3)
  - ASTHMA [None]
  - DRUG INEFFECTIVE [None]
  - PRODUCT QUALITY ISSUE [None]
